FAERS Safety Report 12636921 (Version 1)
Quarter: 2016Q3

REPORT INFORMATION
  Report Type: Spontaneous
  Country: BG (occurrence: BG)
  Receive Date: 20160809
  Receipt Date: 20160809
  Transmission Date: 20161109
  Serious: Yes (Other)
  Sender: FDA-Public Use
  Company Number: PHHY2016BG108378

PATIENT
  Age: 63 Year
  Sex: Male

DRUGS (1)
  1. VOTRIENT [Suspect]
     Active Substance: PAZOPANIB HYDROCHLORIDE
     Indication: RENAL CELL CARCINOMA
     Dosage: UNK
     Route: 048
     Dates: start: 201602

REACTIONS (5)
  - Renal failure [Unknown]
  - Blood creatinine increased [Unknown]
  - Hypoalbuminaemia [Unknown]
  - Proteinuria [Unknown]
  - Hypercalcaemia [Unknown]
